FAERS Safety Report 8264586-1 (Version None)
Quarter: 2012Q2

REPORT INFORMATION
  Report Type: 
  Country: None (occurrence: None)
  Receive Date: 20120403
  Receipt Date: 20120326
  Transmission Date: 20120825
  Serious: Yes (Hospitalization)
  Sender: FDA-Public Use
  Company Number: TPA2012A01645

PATIENT
  Sex: Male

DRUGS (2)
  1. ACTOS [Suspect]
  2. AVANDIA [Suspect]

REACTIONS (1)
  - ANAEMIA [None]
